FAERS Safety Report 4632435-6 (Version None)
Quarter: 2005Q2

REPORT INFORMATION
  Report Type: 
  Country: None (occurrence: None)
  Receive Date: 20050411
  Receipt Date: 20050311
  Transmission Date: 20051028
  Serious: Yes (Death, Other)
  Sender: FDA-Public Use
  Company Number: PHBS2005JP03630

PATIENT
  Sex: 0

DRUGS (1)
  1. TEGRETOL [Suspect]
     Route: 048

REACTIONS (2)
  - AGRANULOCYTOSIS [None]
  - DEATH [None]
